FAERS Safety Report 4970517-X (Version None)
Quarter: 2006Q2

REPORT INFORMATION
  Report Type: 
  Country: None (occurrence: None)
  Receive Date: 20060412
  Receipt Date: 20060119
  Transmission Date: 20061013
  Serious: Yes (Hospitalization)
  Sender: FDA-Public Use
  Company Number: JP-ABBOTT-06P-087-0322980-01

PATIENT
  Sex: Female
  Weight: 60 kg

DRUGS (15)
  1. HUMIRA [Suspect]
     Indication: RHEUMATOID ARTHRITIS
     Route: 058
     Dates: start: 20050510, end: 20060105
  2. HUMIRA [Suspect]
     Route: 058
     Dates: start: 20060201, end: 20060201
  3. METHOTREXATE SODIUM [Concomitant]
     Indication: RHEUMATOID ARTHRITIS
     Route: 048
     Dates: end: 20040609
  4. METHOTREXATE SODIUM [Concomitant]
     Route: 048
     Dates: start: 20040610, end: 20041012
  5. PREDNISOLONE [Concomitant]
     Indication: RHEUMATOID ARTHRITIS
     Route: 048
     Dates: start: 20011001
  6. PREDNISOLONE [Concomitant]
     Route: 048
     Dates: end: 20041014
  7. PREDNISOLONE [Concomitant]
     Route: 048
     Dates: start: 20041015
  8. PREDNISOLONE [Concomitant]
  9. KETOPROFEN [Concomitant]
     Indication: RHEUMATOID ARTHRITIS
     Dates: start: 20050915
  10. OMEPRAZOLE [Concomitant]
     Indication: PROPHYLAXIS AGAINST GASTROINTESTINAL ULCER
     Route: 048
     Dates: start: 20011001
  11. TEPRENONE [Concomitant]
     Indication: PROPHYLAXIS AGAINST GASTROINTESTINAL ULCER
     Route: 048
     Dates: start: 20011001
  12. LIMAPROST [Concomitant]
     Indication: ANGIOPATHY
     Route: 048
     Dates: start: 20011001
  13. FERROUS CITRATE [Concomitant]
     Indication: IRON DEFICIENCY ANAEMIA
     Route: 048
     Dates: start: 20040413
  14. GLYCYRON [Concomitant]
     Indication: HEPATIC FUNCTION ABNORMAL
     Route: 048
     Dates: start: 20041231
  15. METOCLOPRAMIDE [Concomitant]
     Indication: SENSORY DISTURBANCE
     Route: 048
     Dates: start: 20050304

REACTIONS (5)
  - CARDIAC FAILURE [None]
  - CARDIOMEGALY [None]
  - HAEMOPTYSIS [None]
  - OCCULT BLOOD POSITIVE [None]
  - TACHYCARDIA [None]
